FAERS Safety Report 7436373-5 (Version None)
Quarter: 2011Q2

REPORT INFORMATION
  Report Type: 
  Country: None (occurrence: None)
  Receive Date: 20110426
  Receipt Date: 20110418
  Transmission Date: 20111010
  Serious: Yes (Hospitalization)
  Sender: FDA-Public Use
  Company Number: US-BIOGENIDEC-2011BI007972

PATIENT
  Age: 28 Year
  Sex: Female

DRUGS (2)
  1. TYSABRI [Suspect]
     Indication: MULTIPLE SCLEROSIS
     Route: 042
     Dates: start: 20110211, end: 20110311
  2. MEDICATION (NOS) [Concomitant]
     Indication: MIGRAINE

REACTIONS (12)
  - PAIN IN EXTREMITY [None]
  - FLUSHING [None]
  - JOINT SWELLING [None]
  - PARAESTHESIA [None]
  - SKIN WARM [None]
  - HOT FLUSH [None]
  - PALPITATIONS [None]
  - DIZZINESS [None]
  - ARTHRALGIA [None]
  - HYPERHIDROSIS [None]
  - GAIT DISTURBANCE [None]
  - DRUG SPECIFIC ANTIBODY PRESENT [None]
